FAERS Safety Report 12689071 (Version 1)
Quarter: 2016Q3

REPORT INFORMATION
  Report Type: Spontaneous
  Country: US (occurrence: US)
  Receive Date: 20160826
  Receipt Date: 20160826
  Transmission Date: 20161109
  Serious: Yes (Other)
  Sender: FDA-Public Use
  Company Number: US-PSKUSFDA-2016-US-0339

PATIENT
  Age: 22 Year
  Sex: Male
  Weight: 74.84 kg

DRUGS (1)
  1. SANCUSO [Suspect]
     Active Substance: GRANISETRON
     Indication: PROPHYLAXIS OF NAUSEA AND VOMITING
     Dosage: PER CHEMOTHERAPY TREATMENT
     Dates: start: 20160704, end: 2016

REACTIONS (2)
  - Leukopenia [None]
  - Anaemia [None]

NARRATIVE: CASE EVENT DATE: 20160809
